FAERS Safety Report 5970251-3 (Version None)
Quarter: 2008Q4

REPORT INFORMATION
  Report Type: 
  Country: None (occurrence: None)
  Receive Date: 20081126
  Receipt Date: 20081017
  Transmission Date: 20090506
  Serious: No
  Sender: FDA-Public Use
  Company Number: US-ABBOTT-08P-163-0482571-00

PATIENT
  Sex: Male
  Weight: 99.88 kg

DRUGS (6)
  1. SIMCOR [Suspect]
     Indication: BLOOD CHOLESTEROL INCREASED
     Dosage: 500/20
     Route: 048
     Dates: start: 20080701, end: 20081017
  2. SIMCOR [Suspect]
     Indication: HIGH DENSITY LIPOPROTEIN INCREASED
  3. ATENOLOL [Concomitant]
     Indication: HYPERTENSION
     Route: 048
  4. FLECAINIDE ACETATE [Concomitant]
     Indication: ATRIAL FIBRILLATION
     Route: 048
     Dates: start: 20080701
  5. COUMADIN [Concomitant]
     Indication: ATRIAL FIBRILLATION
     Route: 048
  6. COUMADIN [Concomitant]
     Indication: ANTICOAGULANT THERAPY

REACTIONS (4)
  - DRUG INEFFECTIVE [None]
  - FEELING HOT [None]
  - FLUSHING [None]
  - PARAESTHESIA [None]
